FAERS Safety Report 25037089 (Version 4)
Quarter: 2025Q1

REPORT INFORMATION
  Report Type: Spontaneous
  Country: CO (occurrence: CO)
  Receive Date: 20250304
  Receipt Date: 20250331
  Transmission Date: 20250408
  Serious: No
  Sender: PFIZER
  Company Number: CO-PFIZER INC-202500043404

PATIENT
  Age: 16 Year
  Sex: Male

DRUGS (1)
  1. GENOTROPIN [Suspect]
     Active Substance: SOMATROPIN
     Indication: Short stature
     Dosage: 1.8 MG, DAILY
     Route: 058
     Dates: start: 201909, end: 20250318

REACTIONS (5)
  - Off label use [Unknown]
  - Device mechanical issue [Unknown]
  - Device malfunction [Unknown]
  - Device issue [Unknown]
  - Device defective [Unknown]

NARRATIVE: CASE EVENT DATE: 20250201
